FAERS Safety Report 4478499-4 (Version None)
Quarter: 2004Q4

REPORT INFORMATION
  Report Type: 
  Country: None (occurrence: None)
  Receive Date: 20041019
  Receipt Date: 20040922
  Transmission Date: 20050328
  Serious: Yes (Other)
  Sender: FDA-Public Use
  Company Number: PHFR2004GB03619

PATIENT
  Age: 40 Year
  Sex: Male

DRUGS (9)
  1. CLOZARIL [Suspect]
     Indication: SCHIZOPHRENIA
     Dosage: 450MG/DAY
     Route: 048
     Dates: start: 19981120
  2. CLOZARIL [Suspect]
     Dosage: 450MG/DAY
     Route: 048
     Dates: start: 20040825, end: 20040922
  3. CLOZARIL [Suspect]
     Dosage: 500MG/DAY
     Route: 048
     Dates: end: 20040828
  4. CLOZARIL [Suspect]
     Dosage: 400MG/DAY
     Route: 048
     Dates: start: 20040922
  5. AMISULPRIDE [Concomitant]
     Indication: SCHIZOPHRENIA
     Dosage: 600MG/DAY
     Route: 048
  6. LANSOPRAZOLE [Concomitant]
     Indication: PEPTIC ULCER
     Dosage: 15MG/DAY
     Route: 048
  7. ALUMINUM HYDROXIDE AND MAGNESIUM TRISILICATE [Concomitant]
     Indication: PEPTIC ULCER
     Dosage: 30MG/DAY
     Route: 048
  8. FOLIC ACID [Concomitant]
     Indication: FOLATE DEFICIENCY
     Dosage: 5MG/WEEKLY
     Route: 048
  9. LACTULOSE [Concomitant]
     Indication: CONSTIPATION
     Dosage: 10ML/DAY
     Route: 048

REACTIONS (8)
  - ELECTROCARDIOGRAM QT CORRECTED INTERVAL PROLONGED [None]
  - ELECTROCARDIOGRAM QT PROLONGED [None]
  - ELECTROCARDIOGRAM T WAVE ABNORMAL [None]
  - HAEMATURIA [None]
  - LIVER FUNCTION TEST ABNORMAL [None]
  - OBESITY [None]
  - SALIVARY HYPERSECRETION [None]
  - URINARY TRACT INFECTION [None]
